FAERS Safety Report 7266358-3 (Version None)
Quarter: 2011Q1

REPORT INFORMATION
  Report Type: 
  Country: None (occurrence: None)
  Receive Date: 20110131
  Receipt Date: 20110127
  Transmission Date: 20110831
  Serious: Yes (Other)
  Sender: FDA-Public Use
  Company Number: CH-PFIZER INC-2011019449

PATIENT
  Age: 53 Year
  Sex: Male

DRUGS (1)
  1. CAVERJECT [Suspect]
     Dosage: UNK

REACTIONS (1)
  - ALCOHOLISM [None]
